FAERS Safety Report 6633117-1 (Version None)
Quarter: 2010Q1

REPORT INFORMATION
  Report Type: 
  Country: None (occurrence: None)
  Receive Date: 20100312
  Receipt Date: 20100301
  Transmission Date: 20100710
  Serious: Yes (Other)
  Sender: FDA-Public Use
  Company Number: PHEH2010US02809

PATIENT
  Sex: Female

DRUGS (2)
  1. EXFORGE HCT [Suspect]
     Dosage: 160/ 10/ 25 MG
  2. LOPRESSOR [Suspect]
     Dosage: UNK

REACTIONS (3)
  - DISORIENTATION [None]
  - DIZZINESS [None]
  - NAUSEA [None]
